FAERS Safety Report 8055965-6 (Version None)
Quarter: 2012Q1

REPORT INFORMATION
  Report Type: 
  Country: None (occurrence: None)
  Receive Date: 20120119
  Receipt Date: 20120117
  Transmission Date: 20120608
  Serious: Yes (Other)
  Sender: FDA-Public Use
  Company Number: US-ROCHE-1006346

PATIENT
  Sex: Male
  Weight: 77.18 kg

DRUGS (5)
  1. IBUPROFEN (ADVIL) [Concomitant]
  2. HYDROCODONE BITARTRATE [Concomitant]
  3. ACCUTANE [Suspect]
     Indication: ACNE
     Route: 065
     Dates: start: 20030304, end: 20041214
  4. ZYRTEC [Concomitant]
  5. ZITHROMAX [Concomitant]

REACTIONS (10)
  - INFLAMMATORY BOWEL DISEASE [None]
  - ANXIETY [None]
  - CROHN'S DISEASE [None]
  - ANGINA PECTORIS [None]
  - COLITIS ULCERATIVE [None]
  - CHEST PAIN [None]
  - FRACTURE [None]
  - IRRITABLE BOWEL SYNDROME [None]
  - SUPRAVENTRICULAR TACHYCARDIA [None]
  - CARDIAC DISORDER [None]
